FAERS Safety Report 18587765 (Version 1)
Quarter: 2020Q4

REPORT INFORMATION
  Report Type: Spontaneous
  Country: US (occurrence: US)
  Receive Date: 20201207
  Receipt Date: 20201207
  Transmission Date: 20210114
  Serious: No
  Sender: FDA-Public Use
  Company Number: US-NOVOPROD-738394

PATIENT
  Age: 69 Year
  Sex: Female

DRUGS (1)
  1. NOVOLIN 70/30 [Suspect]
     Active Substance: INSULIN HUMAN
     Indication: DIABETES MELLITUS
     Dosage: 101 IU, QD(50 IU AM, 51 IU PM )
     Route: 058
     Dates: start: 2014

REACTIONS (6)
  - Tremor [Unknown]
  - Blood glucose increased [Not Recovered/Not Resolved]
  - Stress [Recovered/Resolved]
  - Inability to afford medication [Not Recovered/Not Resolved]
  - Insomnia [Unknown]
  - Blood glucose decreased [Unknown]

NARRATIVE: CASE EVENT DATE: 202006
